FAERS Safety Report 14426242 (Version 1)
Quarter: 2018Q1

REPORT INFORMATION
  Report Type: Spontaneous
  Country: US (occurrence: US)
  Receive Date: 20180123
  Receipt Date: 20180123
  Transmission Date: 20180509
  Serious: No
  Sender: FDA-Public Use
  Company Number: US-VIIV HEALTHCARE LIMITED-US2018011256

PATIENT
  Sex: Male

DRUGS (15)
  1. ALENDRONATE [Concomitant]
     Active Substance: ALENDRONATE SODIUM
  2. SOMA [Concomitant]
     Active Substance: CARISOPRODOL
  3. AMBIEN [Concomitant]
     Active Substance: ZOLPIDEM TARTRATE
  4. ZETIA [Concomitant]
     Active Substance: EZETIMIBE
  5. DESIPRAMINE [Concomitant]
     Active Substance: DESIPRAMINE
  6. ARTHROTEC [Concomitant]
     Active Substance: DICLOFENAC SODIUM\MISOPROSTOL
  7. PROTONIX [Concomitant]
     Active Substance: PANTOPRAZOLE SODIUM
  8. ATORVASTATIN [Concomitant]
     Active Substance: ATORVASTATIN
  9. FOLIC ACID. [Concomitant]
     Active Substance: FOLIC ACID
  10. HYDROCODONE AND ACETAMINOPHEN [Concomitant]
     Active Substance: ACETAMINOPHEN\HYDROCODONE
  11. CARVEDILOL. [Concomitant]
     Active Substance: CARVEDILOL
  12. EXFORGE [Concomitant]
     Active Substance: AMLODIPINE BESYLATE\VALSARTAN
  13. PRILOSEC [Concomitant]
     Active Substance: OMEPRAZOLE MAGNESIUM
     Dosage: UNK, QD
  14. XANAX [Concomitant]
     Active Substance: ALPRAZOLAM
  15. TRIUMEQ [Suspect]
     Active Substance: ABACAVIR SULFATE\DOLUTEGRAVIR SODIUM\LAMIVUDINE
     Indication: HIV INFECTION
     Dosage: 1 DF, QD
     Route: 048

REACTIONS (1)
  - Scoliosis [Unknown]

NARRATIVE: CASE EVENT DATE: 2016
